FAERS Safety Report 24416071 (Version 1)
Quarter: 2024Q4

REPORT INFORMATION
  Report Type: Spontaneous
  Country: US (occurrence: None)
  Receive Date: 20241008
  Receipt Date: 20241008
  Transmission Date: 20250114
  Serious: No
  Sender: Public
  Company Number: None

PATIENT
  Age: 78 Year
  Sex: Male
  Weight: 56 kg

DRUGS (2)
  1. CEFEPIME HYDROCHLORIDE [Suspect]
     Active Substance: CEFEPIME HYDROCHLORIDE
     Indication: Upper respiratory tract infection
     Dosage: FREQUENCY : 3 TIMES A DAY;?
     Route: 042
  2. PIPERACILLIN AND TAZOBACTAM [Suspect]
     Active Substance: PIPERACILLIN SODIUM\TAZOBACTAM SODIUM

REACTIONS (9)
  - Hypernatraemia [None]
  - Unresponsive to stimuli [None]
  - Hypercapnia [None]
  - Depressed level of consciousness [None]
  - Unresponsive to stimuli [None]
  - Encephalopathy [None]
  - Toxic encephalopathy [None]
  - Acute kidney injury [None]
  - Azotaemia [None]

NARRATIVE: CASE EVENT DATE: 20240513
